FAERS Safety Report 16818624 (Version 1)
Quarter: 2019Q3

REPORT INFORMATION
  Report Type: Spontaneous
  Country: US (occurrence: US)
  Receive Date: 20190917
  Receipt Date: 20190917
  Transmission Date: 20191005
  Serious: No
  Sender: FDA-Public Use
  Company Number: US-PERRIGO-19US005252

PATIENT
  Sex: Female

DRUGS (4)
  1. NEO-POLYCIN [Suspect]
     Active Substance: BACITRACIN ZINC\NEOMYCIN SULFATE\POLYMYXIN B SULFATE
     Indication: EYE INJURY
     Dosage: UNK, QID
     Route: 047
     Dates: start: 20190419
  2. NEO-POLYCIN [Suspect]
     Active Substance: BACITRACIN ZINC\NEOMYCIN SULFATE\POLYMYXIN B SULFATE
     Indication: SUPERFICIAL INJURY OF EYE
  3. RESTASIS [Concomitant]
     Active Substance: CYCLOSPORINE
     Indication: DRY EYE
     Dosage: UNK
     Route: 065
  4. PLAQUENIL                          /00072602/ [Concomitant]
     Active Substance: HYDROXYCHLOROQUINE DIPHOSPHATE
     Indication: AUTOIMMUNE DISORDER
     Dosage: UNK
     Route: 065
     Dates: start: 2003

REACTIONS (7)
  - Ocular hyperaemia [Unknown]
  - Dysgeusia [Unknown]
  - Eye swelling [Unknown]
  - Hypersensitivity [Not Recovered/Not Resolved]
  - Off label use [Unknown]
  - Pruritus [Not Recovered/Not Resolved]
  - Erythema [Unknown]

NARRATIVE: CASE EVENT DATE: 201904
